FAERS Safety Report 8142459-2 (Version None)
Quarter: 2012Q1

REPORT INFORMATION
  Report Type: 
  Country: None (occurrence: None)
  Receive Date: 20120216
  Receipt Date: 20120209
  Transmission Date: 20120608
  Serious: Yes (Hospitalization, Other)
  Sender: FDA-Public Use
  Company Number: DE-ABBOTT-12P-062-0903223-00

PATIENT
  Age: 23 Year
  Sex: Female
  Weight: 64 kg

DRUGS (1)
  1. HUMIRA [Suspect]
     Indication: CROHN'S DISEASE
     Route: 058
     Dates: start: 20110429, end: 20111121

REACTIONS (3)
  - APPENDICECTOMY [None]
  - INTESTINAL ULCER [None]
  - INTESTINAL FISTULA [None]
